FAERS Safety Report 20551327 (Version 2)
Quarter: 2022Q1

REPORT INFORMATION
  Report Type: Spontaneous
  Country: TR (occurrence: TR)
  Receive Date: 20220304
  Receipt Date: 20220330
  Transmission Date: 20220423
  Serious: Yes (Other)
  Sender: FDA-Public Use
  Company Number: TR-NOVOPROD-855657

PATIENT
  Age: 19 Year
  Sex: Female
  Weight: 71.655 kg

DRUGS (4)
  1. LEVEMIR [Suspect]
     Active Substance: INSULIN DETEMIR
     Indication: Diabetes mellitus
     Dosage: 4 IU, QD
     Route: 065
     Dates: end: 20211119
  2. FERROUS GLYCINE SULFATE [Concomitant]
     Active Substance: FERROUS GLYCINE SULFATE
     Indication: Pregnancy
     Dosage: ONCE A DAY
     Route: 065
  3. OMEGA 3 + VITAMIN D [Concomitant]
     Indication: Pregnancy
     Dosage: ONCE A DAY
     Route: 065
  4. NOVORAPID [Suspect]
     Active Substance: INSULIN ASPART
     Indication: Diabetes mellitus
     Dosage: 2 IU, TID
     Route: 065
     Dates: end: 20211119

REACTIONS (4)
  - Magnesium deficiency [Recovered/Resolved]
  - Premature delivery [Recovered/Resolved]
  - Blood glucose increased [Unknown]
  - Maternal exposure during pregnancy [Recovered/Resolved]

NARRATIVE: CASE EVENT DATE: 20211119
